FAERS Safety Report 8570773-5 (Version None)
Quarter: 2012Q3

REPORT INFORMATION
  Report Type: 
  Country: None (occurrence: None)
  Receive Date: 20120806
  Receipt Date: 20120723
  Transmission Date: 20120928
  Serious: Yes (Disabling, Other)
  Sender: FDA-Public Use
  Company Number: US-009507513-1207USA009800

PATIENT

DRUGS (3)
  1. CANDESARTAN CILEXETIL [Concomitant]
  2. ZOCOR [Suspect]
     Route: 048
  3. DRONEDARONE HCL [Suspect]

REACTIONS (4)
  - BLOOD LACTIC ACID INCREASED [None]
  - LACTIC ACIDOSIS [None]
  - MYALGIA [None]
  - PAIN IN EXTREMITY [None]
